FAERS Safety Report 8190861 (Version 5)
Quarter: 2013Q3

REPORT INFORMATION
  Report Type: Report from Study
  Country: DE (occurrence: DE)
  Receive Date: 20111020
  Receipt Date: 20130906
  Transmission Date: 20140515
  Serious: Yes (Hospitalization)
  Sender: FDA-Public Use
  Company Number: DE-UCBSA-043399

PATIENT
  Sex: Male
  Weight: 85 kg

DRUGS (13)
  1. CERTOLIZUMAB PEGOL [Suspect]
     Indication: RHEUMATOID ARTHRITIS
     Dosage: NO OF DOSES RECEIVED:10
     Route: 058
     Dates: start: 20101015, end: 20121123
  2. PREDNISOLONE [Concomitant]
     Indication: RHEUMATOID ARTHRITIS
  3. FOLIC ACID [Concomitant]
     Indication: RHEUMATOID ARTHRITIS
  4. METHOTREXATE [Concomitant]
     Indication: RHEUMATOID ARTHRITIS
  5. LYRICA [Concomitant]
     Indication: NEURALGIA
  6. ALLOPURINOL [Concomitant]
     Indication: HYPERURICAEMIA
  7. AMLODIPINE [Concomitant]
     Indication: HYPERTENSION
  8. ACETYLSALICYLIC ACID [Concomitant]
     Indication: CORONARY ARTERY DISEASE
  9. CRESTOR [Concomitant]
     Indication: HYPERLIPIDAEMIA
  10. RAMIPRIL [Concomitant]
     Indication: HYPERTENSION
  11. PROCORALAN [Concomitant]
     Indication: CORONARY ARTERY DISEASE
  12. METFORMIN [Concomitant]
     Indication: DIABETES MELLITUS
  13. ARICLAIM [Concomitant]
     Indication: NEURALGIA

REACTIONS (1)
  - Intervertebral disc protrusion [Recovered/Resolved]
